FAERS Safety Report 8917679 (Version 2)
Quarter: 2012Q4

REPORT INFORMATION
  Report Type: 
  Country: US (occurrence: US)
  Receive Date: 20121119
  Receipt Date: 20121203
  Transmission Date: 20130627
  Serious: No
  Sender: FDA-Public Use
  Company Number: US-009507513-1211USA005414

PATIENT
  Sex: Male
  Weight: 70.3 kg

DRUGS (8)
  1. CLARITIN-D 24 HOUR [Suspect]
     Indication: NASAL CONGESTION
     Dosage: 10 mg, qd
     Route: 048
     Dates: start: 201204, end: 201206
  2. CLARITIN-D 24 HOUR [Suspect]
     Indication: SEASONAL ALLERGY
  3. CLARITIN-D 24 HOUR [Suspect]
     Indication: MEDICAL OBSERVATION
  4. LISINOPRIL [Concomitant]
     Indication: HYPERTENSION
     Dosage: UNK, Unknown
  5. AMLODIPINE [Concomitant]
     Indication: HYPERTENSION
     Dosage: UNK, Unknown
  6. SIMVASTATIN [Concomitant]
     Indication: BLOOD CHOLESTEROL INCREASED
     Dosage: UNK, Unknown
  7. FLOMAX (MORNIFLUMATE) [Concomitant]
     Indication: PROSTATOMEGALY
     Dosage: UNK, Unknown
  8. DOXAZOSIN MESYLATE [Concomitant]
     Indication: PROSTATOMEGALY
     Dosage: UNK, Unknown

REACTIONS (1)
  - Muscle spasms [Recovered/Resolved]
